FAERS Safety Report 8557654-8 (Version None)
Quarter: 2012Q2

REPORT INFORMATION
  Report Type: 
  Country: None (occurrence: None)
  Receive Date: 20120418
  Receipt Date: 20110328
  Transmission Date: 20120825
  Serious: Yes (Other)
  Sender: FDA-Public Use
  Company Number: PHHY2011US12402

PATIENT
  Age: 40 Year
  Sex: Female

DRUGS (1)
  1. DIOVAN HCT [Suspect]
     Dosage: 80 MG VALS AND 12.5 MG HYDR

REACTIONS (9)
  - NASOPHARYNGITIS [None]
  - HEADACHE [None]
  - HYPERTENSION [None]
  - DYSPNOEA [None]
  - STRESS [None]
  - MALAISE [None]
  - PERIPHERAL COLDNESS [None]
  - CONTUSION [None]
  - RASH [None]
